FAERS Safety Report 5749511-7 (Version None)
Quarter: 2008Q2

REPORT INFORMATION
  Report Type: 
  Country: None (occurrence: None)
  Receive Date: 20080527
  Receipt Date: 20080519
  Transmission Date: 20081010
  Serious: Yes (Hospitalization)
  Sender: FDA-Public Use
  Company Number: B0521500A

PATIENT
  Age: 78 Year
  Sex: Female

DRUGS (12)
  1. AUGMENTIN '125' [Suspect]
     Indication: URINARY TRACT INFECTION
     Route: 048
     Dates: start: 20080404, end: 20080405
  2. NOROXIN [Suspect]
     Indication: URINARY TRACT INFECTION
     Dosage: 400MG TWICE PER DAY
     Route: 048
     Dates: start: 20080331, end: 20080409
  3. LYRICA [Suspect]
     Indication: PARAESTHESIA
     Route: 048
     Dates: start: 20080326, end: 20080409
  4. ACETAMINOPHEN [Concomitant]
     Indication: PYREXIA
     Route: 042
     Dates: start: 20080404, end: 20080407
  5. KALEORID LP [Concomitant]
     Indication: DRUG USE FOR UNKNOWN INDICATION
     Dosage: 1000MG PER DAY
     Route: 048
  6. RIVOTRIL [Concomitant]
     Indication: PARAESTHESIA
     Route: 048
     Dates: start: 20080328
  7. CORTANCYL 20 MG [Concomitant]
     Indication: SJOGREN'S SYNDROME
     Route: 048
     Dates: start: 20080301
  8. FOLIC ACID [Concomitant]
     Indication: DRUG USE FOR UNKNOWN INDICATION
     Route: 048
  9. TRIATEC [Concomitant]
     Indication: HYPERTENSION
     Route: 065
  10. ASPIRIN [Concomitant]
     Indication: DRUG USE FOR UNKNOWN INDICATION
     Route: 048
  11. REPAGLINIDE [Concomitant]
     Indication: DIABETES MELLITUS MALNUTRITION-RELATED
     Dosage: .5MG THREE TIMES PER DAY
     Route: 048
     Dates: start: 20080405
  12. DAFALGAN [Concomitant]
     Indication: PYREXIA
     Route: 065
     Dates: start: 20080306, end: 20080404

REACTIONS (7)
  - ERYTHEMA [None]
  - ERYTHROSIS [None]
  - PYELONEPHRITIS [None]
  - RASH GENERALISED [None]
  - RASH MORBILLIFORM [None]
  - SKIN DISORDER [None]
  - SKIN LESION [None]
